FAERS Safety Report 6442343-6 (Version None)
Quarter: 2009Q4

REPORT INFORMATION
  Report Type: 
  Country: None (occurrence: None)
  Receive Date: 20091112
  Receipt Date: 20091102
  Transmission Date: 20100525
  Serious: Yes (Death, Hospitalization)
  Sender: FDA-Public Use
  Company Number: ADR46542009

PATIENT
  Age: 91 Year
  Sex: Male

DRUGS (10)
  1. SIMVASTATIN [Suspect]
     Indication: CARDIOVASCULAR DISORDER
     Dosage: 40 MG ORAL
     Route: 048
     Dates: start: 20061112, end: 20061230
  2. ALLOPURINOL [Concomitant]
  3. AMLODIPINE [Concomitant]
  4. BISOPROLOL [Concomitant]
  5. CLOPIDOGREL [Concomitant]
  6. ESOMEPRAZOLE [Concomitant]
  7. FRUSEMIDE [Concomitant]
  8. NICORANDIL [Concomitant]
  9. TAMSULOSIN [Concomitant]
  10. LEVOTHYROXINE SODIUM [Concomitant]

REACTIONS (10)
  - CLOSTRIDIAL INFECTION [None]
  - COLITIS [None]
  - GASTROINTESTINAL HAEMORRHAGE [None]
  - GENERAL PHYSICAL HEALTH DETERIORATION [None]
  - GLOMERULONEPHRITIS ACUTE [None]
  - MYOPATHY [None]
  - PANCREATITIS [None]
  - PLEURAL EFFUSION [None]
  - RENAL FAILURE [None]
  - RHABDOMYOLYSIS [None]
